FAERS Safety Report 23496937 (Version 3)
Quarter: 2025Q3

REPORT INFORMATION
  Report Type: Spontaneous
  Country: US (occurrence: US)
  Receive Date: 20240207
  Receipt Date: 20250922
  Transmission Date: 20251021
  Serious: No
  Sender: ROCHE
  Company Number: US-ROCHE-3371544

PATIENT
  Age: 15 Year
  Sex: Female
  Weight: 83.91 kg

DRUGS (3)
  1. XOLAIR [Suspect]
     Active Substance: OMALIZUMAB
     Indication: Idiopathic urticaria
     Dosage: STRENGTH: 150 MG/ML.
     Route: 058
     Dates: start: 202203
  2. XOLAIR [Suspect]
     Active Substance: OMALIZUMAB
     Dosage: STRENGTH: 150 MG/ML. FREQUENCY EVERY 4 WEEKS
     Route: 058
     Dates: start: 202203
  3. RUCONEST [Concomitant]
     Active Substance: CONESTAT ALFA

REACTIONS (7)
  - Weight increased [Unknown]
  - Ill-defined disorder [Recovered/Resolved]
  - Off label use [Unknown]
  - Gastrointestinal disorder [Unknown]
  - Ill-defined disorder [Unknown]
  - Sinus disorder [Unknown]
  - Swelling [Unknown]

NARRATIVE: CASE EVENT DATE: 20220303
